FAERS Safety Report 4927472-8 (Version None)
Quarter: 2006Q1

REPORT INFORMATION
  Report Type: 
  Country: None (occurrence: None)
  Receive Date: 20060228
  Receipt Date: 20050414
  Transmission Date: 20060701
  Serious: Yes (Hospitalization)
  Sender: FDA-Public Use
  Company Number: US-MERCK-0504USA03044

PATIENT
  Age: 47 Year
  Sex: Female
  Weight: 61 kg

DRUGS (7)
  1. VIOXX [Suspect]
     Indication: CARPAL TUNNEL SYNDROME
     Route: 048
     Dates: start: 20031014, end: 20040901
  2. DIOVAN [Concomitant]
     Route: 065
  3. PREVACID [Concomitant]
     Route: 065
  4. ALLEGRA [Concomitant]
     Route: 065
  5. LEXAPRO [Concomitant]
     Route: 065
  6. ASPIRIN [Concomitant]
     Route: 065
  7. VITAMINS (UNSPECIFIED) [Concomitant]
     Route: 065

REACTIONS (2)
  - KIDNEY INFECTION [None]
  - ULCER HAEMORRHAGE [None]
